FAERS Safety Report 5105661-X (Version None)
Quarter: 2006Q3

REPORT INFORMATION
  Report Type: 
  Country: None (occurrence: None)
  Receive Date: 20060915
  Receipt Date: 20060907
  Transmission Date: 20061208
  Serious: Yes (Death, Other)
  Sender: FDA-Public Use
  Company Number: US-JNJFOC-20060901667

PATIENT
  Sex: Female

DRUGS (9)
  1. REMICADE [Suspect]
     Indication: RHEUMATOID ARTHRITIS
     Route: 042
  2. NPH INSULIN [Concomitant]
  3. PREDNISONE TAB [Concomitant]
  4. CALAN [Concomitant]
  5. DIGITALIS [Concomitant]
  6. WARFARIN SODIUM [Concomitant]
  7. LASIX [Concomitant]
  8. TRIAZOLAM [Concomitant]
  9. LORTAB [Concomitant]

REACTIONS (6)
  - CARDIAC ARREST [None]
  - CHRONIC OBSTRUCTIVE PULMONARY DISEASE [None]
  - DIABETES MELLITUS INSULIN-DEPENDENT [None]
  - ESSENTIAL HYPERTENSION [None]
  - NECROTISING FASCIITIS [None]
  - SEPSIS [None]
